FAERS Safety Report 14897552 (Version 1)
Quarter: 2018Q2

REPORT INFORMATION
  Report Type: Report from Study
  Country: BE (occurrence: BE)
  Receive Date: 20180515
  Receipt Date: 20180515
  Transmission Date: 20180711
  Serious: Yes (Other)
  Sender: FDA-Public Use
  Company Number: BE-ASTRAZENECA-2018SE62013

PATIENT
  Age: 22079 Day
  Sex: Male
  Weight: 74 kg

DRUGS (2)
  1. DURVALUMAB. [Suspect]
     Active Substance: DURVALUMAB
     Indication: NON-SMALL CELL LUNG CANCER
     Route: 042
     Dates: start: 20180329
  2. DURVALUMAB. [Suspect]
     Active Substance: DURVALUMAB
     Indication: NON-SMALL CELL LUNG CANCER
     Route: 042
     Dates: start: 20171213

REACTIONS (2)
  - Pneumonitis [Recovered/Resolved]
  - Radiation pneumonitis [Unknown]

NARRATIVE: CASE EVENT DATE: 20180305
